FAERS Safety Report 8387192-7 (Version None)
Quarter: 2012Q2

REPORT INFORMATION
  Report Type: 
  Country: None (occurrence: None)
  Receive Date: 20120525
  Receipt Date: 20120517
  Transmission Date: 20120825
  Serious: Yes (Hospitalization)
  Sender: FDA-Public Use
  Company Number: JP-EISAI INC-E7389-02117-CLI-JP

PATIENT
  Sex: Female
  Weight: 42 kg

DRUGS (16)
  1. MARZULENE-S [Concomitant]
     Indication: PROPHYLAXIS
     Route: 048
  2. OXYCONTIN [Concomitant]
     Route: 048
  3. LEVOFLOXACIN [Concomitant]
     Indication: PROPHYLAXIS
     Route: 048
  4. LASIX [Concomitant]
     Indication: PLEURAL EFFUSION
     Route: 048
  5. HALAVEN [Suspect]
     Indication: METASTASES TO BREAST
     Route: 041
     Dates: start: 20111021, end: 20111021
  6. HALAVEN [Suspect]
     Indication: METASTASES TO BONE
  7. HALAVEN [Suspect]
     Indication: METASTASES TO LYMPH NODES
     Route: 041
     Dates: start: 20120116
  8. ASPARA POTASSIUM [Concomitant]
     Indication: PROPHYLAXIS
     Route: 048
  9. MAGMITT [Concomitant]
     Indication: PROPHYLAXIS
     Route: 048
  10. HALAVEN [Suspect]
     Indication: METASTASES TO CHEST WALL
  11. LANSOPRAZOLE [Concomitant]
     Route: 048
  12. HALAVEN [Suspect]
     Indication: BREAST CANCER RECURRENT
     Route: 041
     Dates: start: 20111104, end: 20111221
  13. ZOLPIDEM [Concomitant]
     Indication: PROPHYLAXIS
     Route: 048
  14. GASMOTIN [Concomitant]
     Route: 048
  15. HOKUNALIN [Concomitant]
     Route: 048
  16. ETODOLAC [Concomitant]
     Route: 048

REACTIONS (4)
  - FEBRILE NEUTROPENIA [None]
  - WHEEZING [None]
  - NEUTROPENIA [None]
  - LEUKOPENIA [None]
